FAERS Safety Report 24242161 (Version 2)
Quarter: 2024Q3

REPORT INFORMATION
  Report Type: Spontaneous
  Country: TZ (occurrence: TZ)
  Receive Date: 20240823
  Receipt Date: 20240925
  Transmission Date: 20241016
  Serious: Yes (Death, Hospitalization)
  Sender: AUROBINDO
  Company Number: TZ-AUROBINDO-AUR-APL-2024-041103

PATIENT
  Sex: Male

DRUGS (9)
  1. MONTELUKAST [Suspect]
     Active Substance: MONTELUKAST SODIUM
     Indication: Pneumoconiosis
     Dosage: 10 MILLIGRAM, ONCE A DAY
     Route: 065
  2. SILDENAFIL [Suspect]
     Active Substance: SILDENAFIL
     Indication: Pulmonary hypertension
     Dosage: 25 MILLIGRAM, TWO TIMES A DAY
     Route: 065
  3. PIRFENIDONE [Suspect]
     Active Substance: PIRFENIDONE
     Indication: Pneumoconiosis
     Dosage: 200 MILLIGRAM, 3 TIMES A DAY,FOR 6 WEEKS
     Route: 065
  4. PIRFENIDONE [Suspect]
     Active Substance: PIRFENIDONE
     Dosage: 800 MILLIGRAM, 3 TIMES A DAY
     Route: 065
  5. PREDNISOLONE [Suspect]
     Active Substance: PREDNISOLONE
     Indication: Pneumoconiosis
     Dosage: 20 MILLIGRAM, ONCE A DAY,FOR 6 WEEKS
     Route: 048
  6. PREDNISOLONE [Suspect]
     Active Substance: PREDNISOLONE
     Dosage: 40 MILLIGRAM, ONCE A DAY
     Route: 048
  7. BUDESONIDE\FORMOTEROL [Suspect]
     Active Substance: BUDESONIDE\FORMOTEROL
     Indication: Pneumoconiosis
     Dosage: UNK UNK, TWO TIMES A DAY,200 ?G/6 ?G TWO PUFFS
     Route: 065
  8. AMOXICILLIN\CLAVULANIC ACID [Concomitant]
     Active Substance: AMOXICILLIN\CLAVULANIC ACID
     Indication: Evidence based treatment
     Dosage: 1.2 G TWO TIMES PER DAY FOR 2 WEEKS
     Route: 042
  9. AZITHROMYCIN [Concomitant]
     Active Substance: AZITHROMYCIN
     Indication: Evidence based treatment
     Dosage: 500 MILLIGRAM, ONCE A DAY
     Route: 048

REACTIONS (1)
  - Drug ineffective [Fatal]
